FAERS Safety Report 6847848-1 (Version None)
Quarter: 2010Q3

REPORT INFORMATION
  Report Type: 
  Country: None (occurrence: None)
  Receive Date: 20100716
  Receipt Date: 20100712
  Transmission Date: 20110219
  Serious: Yes (Hospitalization)
  Sender: FDA-Public Use
  Company Number: US-BRISTOL-MYERS SQUIBB COMPANY-15189574

PATIENT
  Age: 67 Year
  Sex: Male
  Weight: 118 kg

DRUGS (5)
  1. ERBITUX [Suspect]
     Indication: NON-SMALL CELL LUNG CANCER
     Dates: start: 20100503, end: 20100503
  2. TAXOL [Suspect]
     Indication: NON-SMALL CELL LUNG CANCER
     Dosage: LAST DOSE-7JUN10
     Dates: start: 20100503, end: 20100607
  3. CARBOPLATIN [Suspect]
     Indication: NON-SMALL CELL LUNG CANCER
     Dosage: LAST DOSE-14JUN10
     Dates: start: 20100503, end: 20100614
  4. RADIATION THERAPY [Suspect]
     Indication: NON-SMALL CELL LUNG CANCER
     Dosage: LAST TREATMT-7JUL10 DF=CGY NO FRACTNS-37 ELAPSD DYS-37
     Dates: start: 20100503, end: 20100707
  5. FLUCONAZOLE [Concomitant]

REACTIONS (2)
  - CARDIAC FAILURE CONGESTIVE [None]
  - EXFOLIATIVE RASH [None]
